FAERS Safety Report 16923826 (Version 1)
Quarter: 2019Q4

REPORT INFORMATION
  Report Type: Spontaneous
  Country: US (occurrence: US)
  Receive Date: 20191016
  Receipt Date: 20191016
  Transmission Date: 20200122
  Serious: No
  Sender: FDA-Public Use
  Company Number: NVSC2019US001799

PATIENT
  Age: 70 Year
  Sex: Male

DRUGS (2)
  1. PIPERACILIN/TAZOBACTAM [Suspect]
     Active Substance: PIPERACILLIN SODIUM\TAZOBACTAM SODIUM
     Indication: PHARYNGITIS STREPTOCOCCAL
     Route: 065
  2. CLINDAMYCIN. [Suspect]
     Active Substance: CLINDAMYCIN
     Indication: PHARYNGITIS STREPTOCOCCAL
     Route: 065

REACTIONS (1)
  - Drug ineffective [Unknown]
